FAERS Safety Report 23971858 (Version 2)
Quarter: 2024Q2

REPORT INFORMATION
  Report Type: Spontaneous
  Country: NL (occurrence: NL)
  Receive Date: 20240613
  Receipt Date: 20240627
  Transmission Date: 20240715
  Serious: Yes (Other)
  Sender: FDA-Public Use
  Company Number: NL-SANDOZ-SDZ2024NL055165

PATIENT
  Sex: Male

DRUGS (3)
  1. OLANZAPINE [Suspect]
     Active Substance: OLANZAPINE
     Indication: Brain injury
     Dosage: 5 MG
     Route: 065
     Dates: start: 20240509
  2. OLANZAPINE [Suspect]
     Active Substance: OLANZAPINE
     Indication: Nervous system disorder
     Dosage: 5 MG
     Route: 065
     Dates: start: 20240530
  3. OLANZAPINE [Suspect]
     Active Substance: OLANZAPINE
     Dosage: 5 MG
     Route: 065
     Dates: start: 20240601

REACTIONS (26)
  - Hemiparesis [Unknown]
  - Condition aggravated [Unknown]
  - Rectal haemorrhage [Unknown]
  - Neuralgia [Unknown]
  - Muscle spasms [Unknown]
  - Crepitations [Unknown]
  - Heart rate increased [Unknown]
  - Pain in extremity [Unknown]
  - Dry skin [Unknown]
  - Eczema [Unknown]
  - Condition aggravated [Unknown]
  - Skin burning sensation [Unknown]
  - Spontaneous penile erection [Unknown]
  - Tinnitus [Unknown]
  - Paraesthesia [Unknown]
  - Vision blurred [Unknown]
  - Chest pain [Unknown]
  - Headache [Unknown]
  - Agitation [Unknown]
  - Dizziness [Unknown]
  - Nausea [Unknown]
  - Blister [Unknown]
  - Malaise [Unknown]
  - Arthralgia [Unknown]
  - Peripheral swelling [Unknown]
  - Skin irritation [Unknown]

NARRATIVE: CASE EVENT DATE: 20240501
